FAERS Safety Report 9443944 (Version 6)
Quarter: 2014Q3

REPORT INFORMATION
  Report Type: Report from Study
  Country: US (occurrence: US)
  Receive Date: 20130807
  Receipt Date: 20140721
  Transmission Date: 20150326
  Serious: Yes (Hospitalization, Other)
  Sender: FDA-Public Use
  Company Number: US-ROCHE-1257471

PATIENT
  Age: 64 Year
  Sex: Male
  Weight: 87.9 kg

DRUGS (12)
  1. POTASSIUM CHLORIDE. [Concomitant]
     Active Substance: POTASSIUM CHLORIDE
     Dosage: LIQUID 20MEQ
     Route: 048
  2. MAGNESIUM OXIDE. [Concomitant]
     Active Substance: MAGNESIUM OXIDE
     Route: 048
  3. IRINOTECAN [Suspect]
     Active Substance: IRINOTECAN
     Indication: COLORECTAL CANCER METASTATIC
     Dosage: MOST RECENT DOSE PRIOR TO SAE WAS TAKEN ON 08/JUL/2013?MOST RECENT DOSE PRIOR TO SAE WAS TAKEN ON 30
     Route: 065
     Dates: start: 20130522
  4. COUMADIN [Suspect]
     Active Substance: WARFARIN SODIUM
     Indication: DEEP VEIN THROMBOSIS
     Route: 065
  5. FLUOROURACIL. [Suspect]
     Active Substance: FLUOROURACIL
     Dosage: MOST RECENT DOSE PRIOR TO SAE WAS TAKEN ON 08/JUL/2013?MOST RECENT DOSE PRIOR TO SAE WAS TAKEN ON 30
     Route: 042
     Dates: start: 20130522
  6. FLUOROURACIL. [Suspect]
     Active Substance: FLUOROURACIL
     Indication: COLORECTAL CANCER METASTATIC
     Dosage: MOST RECENT DOSE PRIOR TO SAE WAS TAKEN ON 08/JUL/2013?MOST RECENT DOSE PRIOR TO SAE WAS TAKEN ON 30
     Route: 040
     Dates: start: 20130522
  7. BEVACIZUMAB [Suspect]
     Active Substance: BEVACIZUMAB
     Indication: COLORECTAL CANCER METASTATIC
     Dosage: MOST RECENT DOSE PRIOR TO SAE WAS TAKEN ON 08/JUL/2013?MOST RECENT DOSE PRIOR TO SAE WAS TAKEN ON 30
     Route: 065
     Dates: start: 20130522
  8. CALCIUM FOLINATE [Suspect]
     Active Substance: LEUCOVORIN CALCIUM
     Indication: COLORECTAL CANCER METASTATIC
     Dosage: MOST RECENT DOSE PRIOR TO SAE WAS TAKEN ON 08/JUL/2013?MOST RECENT DOSE PRIOR TO SAE WAS TAKEN ON 30
     Route: 065
     Dates: start: 20130522
  9. OMEPRAZOLE. [Concomitant]
     Active Substance: OMEPRAZOLE
  10. POTASSIUM CHLORIDE. [Concomitant]
     Active Substance: POTASSIUM CHLORIDE
     Dosage: IVPB PREMIX 10MEQ
     Route: 042
  11. MAGNESIUM OXIDE. [Concomitant]
     Active Substance: MAGNESIUM OXIDE
     Route: 048
  12. LOVENOX [Concomitant]
     Active Substance: ENOXAPARIN SODIUM

REACTIONS (2)
  - Interstitial lung disease [Recovered/Resolved]
  - Epistaxis [Recovered/Resolved with Sequelae]

NARRATIVE: CASE EVENT DATE: 20130708
